FAERS Safety Report 11810051 (Version 1)
Quarter: 2015Q4

REPORT INFORMATION
  Report Type: Spontaneous
  Country: US (occurrence: None)
  Receive Date: 20151207
  Receipt Date: 20151207
  Transmission Date: 20160305
  Serious: Yes (Disabling)
  Sender: FDA-Public Use
  Company Number: None

PATIENT
  Age: 63 Year

DRUGS (1)
  1. QUINAPRIL [Suspect]
     Active Substance: QUINAPRIL\QUINAPRIL HYDROCHLORIDE
     Indication: HYPERTENSION
     Dosage: 1/2 DF TABLET; TAKEN BY MOUTH; TAKEN FOR LIFE

REACTIONS (5)
  - Blood pressure increased [None]
  - Product substitution issue [None]
  - Oedema peripheral [None]
  - Rash [None]
  - Headache [None]

NARRATIVE: CASE EVENT DATE: 20151120
